FAERS Safety Report 17556044 (Version 1)
Quarter: 2020Q1

REPORT INFORMATION
  Report Type: Spontaneous
  Country: US (occurrence: US)
  Receive Date: 20200318
  Receipt Date: 20200318
  Transmission Date: 20200409
  Serious: Yes (Other)
  Sender: FDA-Public Use
  Company Number: US-REGENERON PHARMACEUTICALS, INC.-2020-24583

PATIENT

DRUGS (3)
  1. EYLEA [Suspect]
     Active Substance: AFLIBERCEPT
     Indication: DIABETIC RETINAL OEDEMA
     Dosage: 1 INJECTION IN THE LEFT EYE
     Route: 031
     Dates: start: 20180925, end: 20180925
  2. EYLEA [Suspect]
     Active Substance: AFLIBERCEPT
     Dosage: LEFT EYE
     Route: 031
     Dates: start: 20200303, end: 20200303
  3. EYLEA [Suspect]
     Active Substance: AFLIBERCEPT
     Indication: DIABETIC RETINOPATHY
     Dosage: LEFT EYE
     Route: 031
     Dates: start: 20180409

REACTIONS (2)
  - Vitrectomy [Unknown]
  - Endophthalmitis [Not Recovered/Not Resolved]

NARRATIVE: CASE EVENT DATE: 20200304
